FAERS Safety Report 6188630-0 (Version None)
Quarter: 2009Q2

REPORT INFORMATION
  Report Type: 
  Country: None (occurrence: None)
  Receive Date: 20090513
  Receipt Date: 20090506
  Transmission Date: 20091009
  Serious: Yes (Other)
  Sender: FDA-Public Use
  Company Number: B0573677A

PATIENT
  Sex: Male
  Weight: 87 kg

DRUGS (4)
  1. PAXIL [Suspect]
     Indication: DEPRESSION
     Dosage: 20MG PER DAY
     Route: 048
     Dates: start: 20090323, end: 20090417
  2. COUMADIN [Concomitant]
     Dates: start: 20090307
  3. CHOLESTEROL REDUCING AGENT [Concomitant]
  4. HEART MEDICATION [Concomitant]
     Dates: start: 20090307

REACTIONS (4)
  - DIZZINESS [None]
  - FEELING COLD [None]
  - HYPERHIDROSIS [None]
  - MUSCULAR WEAKNESS [None]
